FAERS Safety Report 5186439-8 (Version None)
Quarter: 2006Q4

REPORT INFORMATION
  Report Type: 
  Country: None (occurrence: None)
  Receive Date: 20061220
  Receipt Date: 20060825
  Transmission Date: 20070319
  Serious: Yes (Other)
  Sender: FDA-Public Use
  Company Number: RU-ELI_LILLY_AND_COMPANY-RU200608005285

PATIENT
  Sex: Male

DRUGS (6)
  1. CYMBALTA [Suspect]
     Indication: DEPRESSION
     Dosage: 120 MG, DAILY (1/D)
     Route: 048
     Dates: start: 20060817, end: 20060823
  2. CYMBALTA [Suspect]
     Dosage: 60 MG, DAILY (1/D)
     Route: 048
     Dates: start: 20060701, end: 20060816
  3. CYMBALTA [Suspect]
     Dosage: 60 MG, DAILY (1/D)
     Dates: start: 20060823, end: 20060824
  4. ACTOVEGIN 10%-NACL [Concomitant]
     Indication: HYPERTENSION
     Dosage: UNK UNK, WEEKLY (1/W)
     Route: 042
     Dates: start: 20060701, end: 20060822
  5. MAGNESIA [Concomitant]
     Indication: HYPERTENSION
     Dosage: UNK UNK, WEEKLY (1/W)
     Route: 042
     Dates: start: 20060701, end: 20060822
  6. HAEMODESUM [Concomitant]
     Indication: HYPERTENSION
     Dosage: UNK UNK, WEEKLY (1/W)
     Dates: start: 20060701, end: 20060822

REACTIONS (10)
  - BLOOD PRESSURE DECREASED [None]
  - DIZZINESS [None]
  - FATIGUE [None]
  - HEADACHE [None]
  - HYPERTENSION [None]
  - HYPERTHERMIA [None]
  - LEUKOCYTOSIS [None]
  - PLATELET COUNT INCREASED [None]
  - SHIFT TO THE LEFT [None]
  - VERTIGO [None]
